FAERS Safety Report 7988121-8 (Version None)
Quarter: 2011Q4

REPORT INFORMATION
  Report Type: 
  Country: None (occurrence: None)
  Receive Date: 20111216
  Receipt Date: 20110114
  Transmission Date: 20120403
  Serious: No
  Sender: FDA-Public Use
  Company Number: US-ABBOTT-11P-163-0803990-00

PATIENT
  Sex: Female
  Weight: 63.636 kg

DRUGS (1)
  1. PROGESTERONE [Suspect]
     Indication: MENOPAUSE
     Dosage: DAILY DOSE:  UNKNOWN, FREQUENCY: ONCE A DAY
     Route: 065
     Dates: start: 20110101

REACTIONS (1)
  - HYPERSENSITIVITY [None]
